FAERS Safety Report 6249386-6 (Version None)
Quarter: 2009Q2

REPORT INFORMATION
  Report Type: 
  Country: None (occurrence: None)
  Receive Date: 20090629
  Receipt Date: 20090616
  Transmission Date: 20091009
  Serious: Yes (Death)
  Sender: FDA-Public Use
  Company Number: US-BIOGENIDEC-2009BI017254

PATIENT
  Age: 60 Year
  Sex: Male

DRUGS (3)
  1. AVONEX [Suspect]
     Indication: MULTIPLE SCLEROSIS
     Route: 030
     Dates: start: 20090414, end: 20090401
  2. AVONEX [Suspect]
     Route: 030
     Dates: start: 20090401, end: 20090401
  3. AVONEX [Suspect]
     Route: 030
     Dates: start: 20090401, end: 20090401

REACTIONS (2)
  - ATAXIA [None]
  - DEATH [None]
